FAERS Safety Report 8267033-9 (Version None)
Quarter: 2012Q2

REPORT INFORMATION
  Report Type: 
  Country: None (occurrence: None)
  Receive Date: 20120409
  Receipt Date: 20120404
  Transmission Date: 20120825
  Serious: No
  Sender: FDA-Public Use
  Company Number: US-PFIZER INC-2012074157

PATIENT
  Sex: Female
  Weight: 104 kg

DRUGS (5)
  1. CELEXA [Concomitant]
     Indication: DEPRESSION
     Dosage: UNK
  2. ELAVIL [Concomitant]
     Indication: DEPRESSION
     Dosage: UNK
  3. TRIAVIL [Concomitant]
     Indication: DEPRESSION
     Dosage: UNK
  4. CHANTIX [Suspect]
     Indication: SMOKING CESSATION THERAPY
     Dosage: 0.5 MG; UNK
     Route: 048
     Dates: start: 20120205, end: 20120101
  5. CHANTIX [Suspect]
     Dosage: 1 MG, 2X/DAY
     Route: 048
     Dates: start: 20120101

REACTIONS (1)
  - ABNORMAL DREAMS [None]
